FAERS Safety Report 15939773 (Version 1)
Quarter: 2019Q1

REPORT INFORMATION
  Report Type: Spontaneous
  Country: FR (occurrence: FR)
  Receive Date: 20190208
  Receipt Date: 20190208
  Transmission Date: 20190417
  Serious: Yes (Life-Threatening, Hospitalization)
  Sender: FDA-Public Use
  Company Number: IND-FR-009507513-1901FRA010506

PATIENT
  Age: 67 Year
  Sex: Female
  Weight: 120 kg

DRUGS (5)
  1. LEVOTHYROX [Concomitant]
     Active Substance: LEVOTHYROXINE
  2. ESMERON [Suspect]
     Active Substance: ROCURONIUM BROMIDE
     Indication: GENERAL ANAESTHESIA
     Dosage: 140 MILLIGRAM
     Route: 042
     Dates: start: 20181218, end: 20181218
  3. DEXDOR [Suspect]
     Active Substance: DEXMEDETOMIDINE HYDROCHLORIDE
     Indication: GENERAL ANAESTHESIA
     Dosage: 100 MICROGRAM
     Route: 041
     Dates: start: 20181218, end: 20181218
  4. PROPOFOL. [Suspect]
     Active Substance: PROPOFOL
     Indication: GENERAL ANAESTHESIA
     Dosage: 300 MILLIGRAM
     Route: 042
     Dates: start: 20181218, end: 20181218
  5. KETAMINE [Suspect]
     Active Substance: KETAMINE
     Indication: GENERAL ANAESTHESIA
     Dosage: 140 MILLIGRAM
     Dates: start: 20181218, end: 20181218

REACTIONS (2)
  - Anaphylactic shock [Recovered/Resolved]
  - Cardio-respiratory arrest [Recovered/Resolved]

NARRATIVE: CASE EVENT DATE: 20181218
